FAERS Safety Report 7631069-9 (Version None)
Quarter: 2011Q3

REPORT INFORMATION
  Report Type: 
  Country: None (occurrence: None)
  Receive Date: 20110725
  Receipt Date: 20110712
  Transmission Date: 20111222
  Serious: Yes (Hospitalization)
  Sender: FDA-Public Use
  Company Number: US-CELGENEUS-163-21880-11060281

PATIENT
  Age: 77 Year
  Sex: Male

DRUGS (28)
  1. SIMVASTATIN [Concomitant]
     Route: 065
  2. BACITRACIN [Concomitant]
     Route: 055
  3. POTASSIUM [Concomitant]
     Route: 055
  4. MARINOL [Concomitant]
     Route: 055
  5. OS-CAL [Concomitant]
     Route: 055
  6. GENTAMYCIN SULFATE [Concomitant]
     Route: 055
  7. LACTULOSE [Concomitant]
     Route: 055
  8. PLAVIX [Concomitant]
     Route: 065
  9. PEPCID [Concomitant]
     Route: 065
  10. ALLOPURINOL [Concomitant]
     Route: 065
  11. ANCEF [Concomitant]
     Route: 055
  12. DEXAMETHASONE [Suspect]
     Indication: MULTIPLE MYELOMA
     Dosage: 40 MILLIGRAM
     Route: 065
     Dates: start: 20100419, end: 20100601
  13. DEXAMETHASONE [Suspect]
     Dosage: 20 MILLIGRAM
     Route: 048
     Dates: start: 20100419, end: 20100601
  14. ATENOLOL [Concomitant]
     Route: 065
  15. ISONIAZID [Concomitant]
     Route: 065
  16. COLACE [Concomitant]
     Route: 055
  17. ZOFRAN [Concomitant]
     Route: 055
  18. IMDUR [Concomitant]
     Route: 065
  19. TENORMIN [Concomitant]
     Route: 055
  20. MORPHINE [Concomitant]
     Route: 055
  21. ZOCOR [Concomitant]
     Route: 055
  22. REVLIMID [Suspect]
     Indication: MULTIPLE MYELOMA
     Dosage: 25 MILLIGRAM
     Route: 048
     Dates: start: 20100310, end: 20100601
  23. ASPIRIN [Concomitant]
     Route: 065
  24. PREDNISONE [Concomitant]
     Route: 065
  25. HEPARIN [Concomitant]
     Route: 041
  26. CARDIZEM [Concomitant]
     Route: 065
  27. SPIRIVA [Concomitant]
     Route: 055
  28. COUMADIN [Concomitant]
     Route: 055

REACTIONS (1)
  - ATRIAL FIBRILLATION [None]
